FAERS Safety Report 21673091 (Version 4)
Quarter: 2023Q1

REPORT INFORMATION
  Report Type: Spontaneous
  Country: US (occurrence: US)
  Receive Date: 20221202
  Receipt Date: 20230122
  Transmission Date: 20230418
  Serious: Yes (Other)
  Sender: FDA-Public Use
  Company Number: US-Calliditas-2022CAL00560

PATIENT
  Age: 55 Year
  Sex: Male

DRUGS (13)
  1. TARPEYO [Suspect]
     Active Substance: BUDESONIDE
     Indication: Haematuria
     Dosage: 16 MG ( 4MG CAPSULES) DAILY
     Route: 048
     Dates: start: 20221111
  2. APIXABAN [Concomitant]
     Active Substance: APIXABAN
  3. CALCIUM ACETATE [Concomitant]
     Active Substance: CALCIUM ACETATE
  4. FERROUS SULFATE [Concomitant]
     Active Substance: FERROUS SULFATE
  5. GABAPENTIN [Concomitant]
     Active Substance: GABAPENTIN
  6. LISINOPRIL [Concomitant]
     Active Substance: LISINOPRIL
  7. TOPROL XL [Concomitant]
     Active Substance: METOPROLOL SUCCINATE
  8. CALCITRIOL [Concomitant]
     Active Substance: CALCITRIOL
  9. MIDODRINE [Concomitant]
     Active Substance: MIDODRINE
  10. PANTOPRAZOLE [Concomitant]
     Active Substance: PANTOPRAZOLE
  11. SPIRONOLACTONE [Concomitant]
     Active Substance: SPIRONOLACTONE
  12. AMIODARONE [Concomitant]
     Active Substance: AMIODARONE
  13. SEVELAMER [Concomitant]
     Active Substance: SEVELAMER

REACTIONS (3)
  - Joint instability [Recovered/Resolved]
  - Acute kidney injury [Not Recovered/Not Resolved]
  - Dialysis [Unknown]

NARRATIVE: CASE EVENT DATE: 20221101
